FAERS Safety Report 10535155 (Version 2)
Quarter: 2014Q4

REPORT INFORMATION
  Report Type: Spontaneous
  Country: DE (occurrence: DE)
  Receive Date: 20141022
  Receipt Date: 20141030
  Transmission Date: 20150529
  Serious: Yes (Other)
  Sender: FDA-Public Use
  Company Number: DE-PFIZER INC-2014286654

PATIENT
  Age: 74 Year
  Sex: Male

DRUGS (10)
  1. ATORVASTATIN [Concomitant]
     Active Substance: ATORVASTATIN
  2. L-THYROXIN [Concomitant]
     Active Substance: LEVOTHYROXINE SODIUM
  3. INSPRA [Concomitant]
     Active Substance: EPLERENONE
     Dosage: 25 MG, UNK
  4. TORASEMIDE [Concomitant]
     Active Substance: TORSEMIDE
  5. ASPIRIN. [Concomitant]
     Active Substance: ASPIRIN
     Dosage: 100 MG, UNK
  6. KARVEA [Concomitant]
     Active Substance: IRBESARTAN
     Dosage: 75 MG, 2X/DAY
  7. REVATIO [Suspect]
     Active Substance: SILDENAFIL CITRATE
     Indication: PULMONARY HYPERTENSION
     Dosage: 20 MG, UNK
     Dates: start: 201410, end: 201410
  8. OMEPRAZOL [Concomitant]
     Active Substance: OMEPRAZOLE
  9. OPIPRAMOL [Concomitant]
     Active Substance: OPIPRAMOL
  10. XARELTO [Concomitant]
     Active Substance: RIVAROXABAN

REACTIONS (4)
  - Renal disorder [Unknown]
  - Fluid retention [Unknown]
  - Penile haemorrhage [Unknown]
  - Headache [Unknown]

NARRATIVE: CASE EVENT DATE: 201410
